FAERS Safety Report 23838868 (Version 3)
Quarter: 2024Q2

REPORT INFORMATION
  Report Type: Spontaneous
  Country: DE (occurrence: DE)
  Receive Date: 20240509
  Receipt Date: 20240521
  Transmission Date: 20240716
  Serious: Yes (Other)
  Sender: FDA-Public Use
  Company Number: DE-AMICUS THERAPEUTICS, INC.-AMI_3091

PATIENT
  Age: 44 Year
  Sex: Female
  Weight: 83.5 kg

DRUGS (4)
  1. POMBILITI [Suspect]
     Active Substance: CIPAGLUCOSIDASE ALFA-ATGA
     Indication: Glycogen storage disease type II
     Dosage: 1575 MILLIGRAM, Q2WK
     Route: 042
     Dates: end: 20240424
  2. POMBILITI [Suspect]
     Active Substance: CIPAGLUCOSIDASE ALFA-ATGA
     Dosage: 1575 MILLIGRAM, Q2WK
     Route: 042
     Dates: start: 20240506
  3. OPFOLDA [Suspect]
     Active Substance: MIGLUSTAT
     Indication: Glycogen storage disease type II
     Dosage: 260 MILLIGRAM, Q2WK, ONE HOUR BEFORE INFUSION
     Route: 048
     Dates: end: 20240424
  4. OPFOLDA [Suspect]
     Active Substance: MIGLUSTAT
     Dosage: 260 MILLIGRAM, Q2WK, ONE HOUR BEFORE INFUSION
     Route: 048
     Dates: start: 20240506

REACTIONS (1)
  - Pneumonia [Recovered/Resolved]

NARRATIVE: CASE EVENT DATE: 20240423
